FAERS Safety Report 9714169 (Version 1)
Quarter: 2013Q4

REPORT INFORMATION
  Report Type: Spontaneous
  Country: US (occurrence: US)
  Receive Date: 20131126
  Receipt Date: 20131126
  Transmission Date: 20140711
  Serious: Yes (Hospitalization)
  Sender: FDA-Public Use
  Company Number: US-GILEAD-2008-0019097

PATIENT
  Age: 53 Year
  Sex: Male
  Weight: 114.3 kg

DRUGS (9)
  1. LETAIRIS [Suspect]
     Indication: PULMONARY ARTERIAL HYPERTENSION
     Route: 048
     Dates: start: 20071026
  2. PULMICORT [Concomitant]
  3. DUONEB [Concomitant]
  4. LASIX [Concomitant]
  5. ATENOLOL [Concomitant]
  6. NORVASC [Concomitant]
  7. LISINOPRIL [Concomitant]
  8. NOVOLIN R [Concomitant]
  9. ASPIRIN [Concomitant]

REACTIONS (1)
  - Dyspnoea [Recovered/Resolved]
